FAERS Safety Report 8347779 (Version 3)
Quarter: 2017Q2

REPORT INFORMATION
  Report Type: Spontaneous
  Country: HR (occurrence: HR)
  Receive Date: 20120122
  Receipt Date: 20170602
  Transmission Date: 20170830
  Serious: Yes (Hospitalization, Other)
  Sender: FDA-Public Use
  Company Number: PHHY2011HR79915

PATIENT
  Age: 31 Year
  Sex: Female

DRUGS (26)
  1. BACLOFEN. [Suspect]
     Active Substance: BACLOFEN
     Dosage: 25 MG, TID
     Route: 065
     Dates: start: 200904
  2. NEUROBION FORTE [Concomitant]
     Active Substance: CYANOCOBALAMIN\PYRIDOXINE HYDROCHLORIDE\THIAMINE DISULFIDE
     Indication: ASTHENIA
     Dosage: UNK UKN, UNK
     Route: 065
     Dates: start: 200805
  3. ALPRAZOLAM. [Concomitant]
     Active Substance: ALPRAZOLAM
     Indication: PERSISTENT DEPRESSIVE DISORDER
     Dosage: UNK UKN, UNK
     Route: 065
     Dates: start: 200805
  4. FEXOFENADINE [Concomitant]
     Active Substance: FEXOFENADINE\FEXOFENADINE HYDROCHLORIDE
     Indication: HEADACHE
     Dosage: 180 MG, UNK
     Route: 065
  5. TRAMADOL+PARACETAMOL [Suspect]
     Active Substance: ACETAMINOPHEN\TRAMADOL
     Dosage: PP
     Route: 065
     Dates: start: 201003
  6. OXYCODONE HYDROCHLORIDE. [Suspect]
     Active Substance: OXYCODONE HYDROCHLORIDE
     Dosage: 10 MG, PP
     Route: 065
     Dates: start: 201003
  7. PANTOPRAZOLE [Concomitant]
     Active Substance: PANTOPRAZOLE
     Indication: PRODUCT USED FOR UNKNOWN INDICATION
     Dosage: 20 MG, UNK
     Route: 065
     Dates: start: 200904
  8. PREGABALIN. [Suspect]
     Active Substance: PREGABALIN
     Indication: PAIN
     Dosage: 300 MG, BID
     Route: 065
     Dates: start: 201003
  9. TRAMADOL+PARACETAMOL [Suspect]
     Active Substance: ACETAMINOPHEN\TRAMADOL
     Dosage: 2 DF, TID (TRAMADOL 37.5MG/PARACETAMOL 325MG)
     Route: 065
     Dates: start: 200904
  10. GINKGO BILOBA [Concomitant]
     Active Substance: GINKGO
     Indication: RASH
     Dosage: 120 MG, UNK
     Route: 065
     Dates: start: 201003
  11. BACLOFEN. [Suspect]
     Active Substance: BACLOFEN
     Indication: PRODUCT USED FOR UNKNOWN INDICATION
     Dosage: 10 MG, TID
     Route: 065
     Dates: start: 200709
  12. BACLOFEN. [Suspect]
     Active Substance: BACLOFEN
     Dosage: 25 MG, TID
     Route: 065
     Dates: start: 200805
  13. DIAZEPAM. [Suspect]
     Active Substance: DIAZEPAM
     Indication: PRODUCT USED FOR UNKNOWN INDICATION
     Dosage: 5 UG, QD
     Route: 065
     Dates: start: 200709
  14. GABAPENTIN. [Suspect]
     Active Substance: GABAPENTIN
     Indication: MENTAL DISORDER
     Dosage: 3X300 MG, UNK
     Route: 065
     Dates: start: 200904
  15. TRAMADOL+PARACETAMOL [Suspect]
     Active Substance: ACETAMINOPHEN\TRAMADOL
     Indication: PRODUCT USED FOR UNKNOWN INDICATION
     Dosage: 2 DF, TID (TRAMADOL 37.5MG/PARACETAMOL 325MG)
     Route: 065
     Dates: start: 200709
  16. TRAMADOL+PARACETAMOL [Suspect]
     Active Substance: ACETAMINOPHEN\TRAMADOL
     Dosage: 2 DF, TID (TRAMADOL 37.5MG/PARACETAMOL 325MG)
     Route: 065
     Dates: start: 200805
  17. SERTRALINE [Concomitant]
     Active Substance: SERTRALINE HYDROCHLORIDE
     Dosage: 50 MG, QD
     Route: 065
     Dates: start: 200904
  18. PIROXICAM. [Concomitant]
     Active Substance: PIROXICAM
     Indication: MUSCULOSKELETAL STIFFNESS
     Dosage: 20 MG, UNK
     Route: 065
     Dates: start: 200709
  19. LEVOTHYROXINE. [Concomitant]
     Active Substance: LEVOTHYROXINE
     Indication: QUADRIPARESIS
     Dosage: 50 UG, UNK
     Route: 065
  20. OXYCODONE HYDROCHLORIDE. [Suspect]
     Active Substance: OXYCODONE HYDROCHLORIDE
     Indication: PRODUCT USED FOR UNKNOWN INDICATION
     Dosage: 10 MG, TID
     Route: 065
     Dates: start: 200904
  21. BUPRENORPHINE. [Suspect]
     Active Substance: BUPRENORPHINE
     Indication: BRADYPHRENIA
     Dosage: 70 UG/72 H, UNK
     Route: 065
     Dates: start: 200904
  22. SERTRALINE [Concomitant]
     Active Substance: SERTRALINE HYDROCHLORIDE
     Indication: HEADACHE
     Dosage: 50 MG, QD
     Route: 065
     Dates: start: 200805
  23. BACLOFEN. [Suspect]
     Active Substance: BACLOFEN
     Dosage: 25 MG, TID
     Route: 065
     Dates: start: 201003
  24. ESOMEPRAZOLE [Suspect]
     Active Substance: ESOMEPRAZOLE
     Indication: ASTHENIA
     Dosage: 20 MG, BID
     Route: 065
     Dates: start: 201003
  25. CARBAMAZEPINE. [Suspect]
     Active Substance: CARBAMAZEPINE
     Indication: PRODUCT USED FOR UNKNOWN INDICATION
     Dosage: 200 MG, TID
     Route: 065
     Dates: start: 200709
  26. FENTANYL. [Suspect]
     Active Substance: FENTANYL
     Indication: PAIN
     Dosage: 100 UG/72 H, UNK
     Route: 065
     Dates: start: 201003

REACTIONS (20)
  - Syncope [Unknown]
  - Conversion disorder [Unknown]
  - Nausea [Unknown]
  - Pain [Unknown]
  - Depression [Unknown]
  - Disturbance in attention [Unknown]
  - Feeling abnormal [Unknown]
  - Vomiting [Unknown]
  - Schizophrenia [Unknown]
  - Quadriparesis [Unknown]
  - Cognitive disorder [Unknown]
  - Dizziness [Unknown]
  - Anxiety [Unknown]
  - Sedation [Unknown]
  - Loss of consciousness [Unknown]
  - Diplopia [Unknown]
  - Neurosis [Unknown]
  - Confusional state [Unknown]
  - Ataxia [Unknown]
  - Asthenia [Unknown]
